FAERS Safety Report 6425245-0 (Version None)
Quarter: 2009Q4

REPORT INFORMATION
  Report Type: 
  Country: None (occurrence: None)
  Receive Date: 20091030
  Receipt Date: 20091030
  Transmission Date: 20100525
  Serious: Yes (Other)
  Sender: FDA-Public Use
  Company Number: None

PATIENT
  Age: 65 Year
  Sex: Male
  Weight: 66.6788 kg

DRUGS (18)
  1. CYTARABINE [Suspect]
     Indication: ACUTE MYELOID LEUKAEMIA
     Dosage: 173 UNITS IV
     Route: 042
     Dates: start: 20091009
  2. CYTARABINE [Suspect]
     Indication: ACUTE MYELOID LEUKAEMIA
     Dosage: 173 UNITS IV
     Route: 042
     Dates: start: 20091011
  3. CYTARABINE [Suspect]
     Indication: ACUTE MYELOID LEUKAEMIA
     Dosage: 173 UNITS IV
     Route: 042
     Dates: start: 20091013
  4. DAUNORUBICIN HCL [Suspect]
  5. MUCOMYST [Concomitant]
  6. CEFEPIME [Concomitant]
  7. DIPHENHYDRAMINE [Concomitant]
  8. ACETAMINOPHEN [Concomitant]
  9. LORAZEPAM [Concomitant]
  10. COMPAZINE [Concomitant]
  11. DECADRON [Concomitant]
  12. MARINOL [Concomitant]
  13. ALLOPURINOL [Concomitant]
  14. VANCOMYCIN [Concomitant]
  15. COLACE [Concomitant]
  16. NEXIUM [Concomitant]
  17. AMBIEN [Concomitant]
  18. ZOFRAN [Concomitant]

REACTIONS (3)
  - ABDOMINAL PAIN UPPER [None]
  - ATRIAL FIBRILLATION [None]
  - HYPERHIDROSIS [None]
